FAERS Safety Report 4359780-6 (Version None)
Quarter: 2004Q2

REPORT INFORMATION
  Report Type: 
  Country: None (occurrence: None)
  Receive Date: 20040518
  Receipt Date: 20040513
  Transmission Date: 20050107
  Serious: Yes (Other)
  Sender: FDA-Public Use
  Company Number: CA-GLAXOSMITHKLINE-A0511018A

PATIENT
  Age: 43 Year
  Sex: Male

DRUGS (3)
  1. TRIZIVIR [Suspect]
     Indication: ACQUIRED IMMUNODEFICIENCY SYNDROME
     Dosage: 1TAB TWICE PER DAY
     Route: 048
     Dates: start: 20030601, end: 20040512
  2. ALCOHOL [Concomitant]
  3. MARIJUANA [Concomitant]

REACTIONS (15)
  - ABASIA [None]
  - ANXIETY [None]
  - CANDIDIASIS [None]
  - CELLULITIS [None]
  - CRYING [None]
  - DEPRESSION [None]
  - DYSPNOEA [None]
  - FATIGUE [None]
  - HEADACHE [None]
  - HERPES ZOSTER [None]
  - NAUSEA [None]
  - NEUROPATHY PERIPHERAL [None]
  - PYREXIA [None]
  - RASH [None]
  - VOMITING [None]
